FAERS Safety Report 5444948-8 (Version None)
Quarter: 2007Q3

REPORT INFORMATION
  Report Type: 
  Country: None (occurrence: None)
  Receive Date: 20070906
  Receipt Date: 20070830
  Transmission Date: 20080115
  Serious: Yes (Death)
  Sender: FDA-Public Use
  Company Number: KR-ROCHE-514338

PATIENT

DRUGS (4)
  1. CAPECITABINE [Suspect]
     Indication: NON-SMALL CELL LUNG CANCER
     Dosage: GIVEN ON DAYS 1-14 OF 3 WEEK CYCLE (DOSE LEVEL I)
     Route: 048
  2. DOCETAXEL [Suspect]
     Indication: NON-SMALL CELL LUNG CANCER
     Dosage: 1 HOUR INFUSION ON DAYS 1 AND 8 OF EACH 3 WEEK CYCLE (DOSE LEVEL I)
     Route: 042
  3. DEXAMETHASONE 0.5MG TAB [Concomitant]
     Dosage: TAKEN IMMEDIATELY BEFORE AND 12 HOURS AFTER DOCETAXEL
     Route: 048
  4. ONDANSETRON [Concomitant]
     Route: 042

REACTIONS (1)
  - SEPSIS [None]
